FAERS Safety Report 10067365 (Version 2)
Quarter: 2014Q2

REPORT INFORMATION
  Report Type: Spontaneous
  Country: DE (occurrence: None)
  Receive Date: 20140407
  Receipt Date: 20140428
  Transmission Date: 20141212
  Serious: Yes (Hospitalization)
  Sender: FDA-Public Use
  Company Number: DE-014974

PATIENT
  Age: 12 Year
  Sex: Female

DRUGS (1)
  1. ZOMACTON [Suspect]
     Indication: TURNER^S SYNDROME
     Route: 058
     Dates: start: 20110215

REACTIONS (1)
  - Epiphysitis [None]
